FAERS Safety Report 14569474 (Version 2)
Quarter: 2018Q2

REPORT INFORMATION
  Report Type: Spontaneous
  Country: US (occurrence: US)
  Receive Date: 20180224
  Receipt Date: 20180418
  Transmission Date: 20180711
  Serious: No
  Sender: FDA-Public Use
  Company Number: US-ASTRAZENECA-2018SE12122

PATIENT
  Age: 24365 Day
  Sex: Male
  Weight: 131.5 kg

DRUGS (1)
  1. BYDUREON BCISE [Suspect]
     Active Substance: EXENATIDE
     Indication: TYPE 2 DIABETES MELLITUS
     Route: 058
     Dates: start: 20180113

REACTIONS (2)
  - Injection site extravasation [Unknown]
  - Overweight [Unknown]

NARRATIVE: CASE EVENT DATE: 20180127
